FAERS Safety Report 19821467 (Version 2)
Quarter: 2021Q3

REPORT INFORMATION
  Report Type: Report from Study
  Country: ES (occurrence: ES)
  Receive Date: 20210913
  Receipt Date: 20210916
  Transmission Date: 20211014
  Serious: Yes (Hospitalization)
  Sender: FDA-Public Use
  Company Number: ES-ROCHE-1755589

PATIENT
  Age: 37 Year
  Sex: Female
  Weight: 52 kg

DRUGS (27)
  1. OCRELIZUMAB. [Suspect]
     Active Substance: OCRELIZUMAB
     Indication: RELAPSING-REMITTING MULTIPLE SCLEROSIS
     Dosage: NEXT DOSE ON 02/JUL/2012, 03/DEC/2012, 27/MAY/2013 AND 04/NOV/2013
     Route: 042
     Dates: start: 20120618, end: 20120618
  2. PARACETAMOL [Concomitant]
     Active Substance: ACETAMINOPHEN
     Dates: start: 20130622, end: 20130622
  3. IBUPROFEN. [Concomitant]
     Active Substance: IBUPROFEN
     Dates: start: 20120618, end: 20120820
  4. IBUPROFEN. [Concomitant]
     Active Substance: IBUPROFEN
     Dates: start: 20121112, end: 20121119
  5. IBUPROFEN. [Concomitant]
     Active Substance: IBUPROFEN
     Dates: start: 20160215, end: 20160218
  6. IBUPROFEN. [Concomitant]
     Active Substance: IBUPROFEN
     Dates: start: 20160422, end: 20160507
  7. PLACEBO [Suspect]
     Active Substance: UNSPECIFIED INGREDIENT
     Indication: RELAPSING-REMITTING MULTIPLE SCLEROSIS
     Dosage: (ROUTE AND FREQUENCY AS PER PROTOCOL). ON 02/MAY/2014, SHE RECEIVED HER FINAL DOSE OF BLINDED INTERF
     Route: 058
     Dates: start: 20120618, end: 20120713
  8. METHYLPREDNISOLONE. [Concomitant]
     Active Substance: METHYLPREDNISOLONE
     Indication: PREMEDICATION
     Dates: start: 20120618
  9. AZITHROMYCIN ANHYDROUS. [Concomitant]
     Active Substance: AZITHROMYCIN ANHYDROUS
     Dates: start: 20160216, end: 20160218
  10. OCRELIZUMAB. [Suspect]
     Active Substance: OCRELIZUMAB
     Indication: RELAPSING-REMITTING MULTIPLE SCLEROSIS
     Dosage: (OPEN?LABEL WEEK 0)?NEXT DOSES ON 19/MAY/2014, 20/OCT/2014, 13/APR/2015, 21/SEP/2015, 07/MAR/2016, 0
     Route: 042
     Dates: start: 20140505, end: 20140505
  11. PARACETAMOL [Concomitant]
     Active Substance: ACETAMINOPHEN
     Dates: start: 20160507, end: 20160510
  12. PARACETAMOL [Concomitant]
     Active Substance: ACETAMINOPHEN
     Indication: PREMEDICATION
     Dates: start: 20120618
  13. POLARAMINE [Concomitant]
     Active Substance: DEXCHLORPHENIRAMINE MALEATE
     Indication: PREMEDICATION
     Dates: start: 20120618
  14. ACETYLCYSTEINE. [Concomitant]
     Active Substance: ACETYLCYSTEINE
     Dates: start: 20130514, end: 20130518
  15. IBUPROFEN. [Concomitant]
     Active Substance: IBUPROFEN
     Dates: start: 20111122
  16. GELOCATIL [Concomitant]
     Active Substance: ACETAMINOPHEN
     Dates: start: 20121124, end: 20121125
  17. SPECTRACEF (SPAIN) [Concomitant]
     Dates: start: 20160511, end: 20160517
  18. IBUPROFEN. [Concomitant]
     Active Substance: IBUPROFEN
     Dates: start: 20130514, end: 20130518
  19. IBUPROFEN. [Concomitant]
     Active Substance: IBUPROFEN
     Dates: start: 20130622, end: 20130622
  20. HIBOR [Concomitant]
     Dates: start: 20120923, end: 20121002
  21. AZITHROMYCIN ANHYDROUS. [Concomitant]
     Active Substance: AZITHROMYCIN ANHYDROUS
     Dates: start: 20140108, end: 20140110
  22. PLACEBO [Suspect]
     Active Substance: UNSPECIFIED INGREDIENT
     Route: 058
     Dates: start: 20140421, end: 20140502
  23. OMEPRAZOLE. [Concomitant]
     Active Substance: OMEPRAZOLE
     Indication: PREMEDICATION
     Dates: start: 20120618
  24. PARACETAMOL [Concomitant]
     Active Substance: ACETAMINOPHEN
     Dates: start: 20140925, end: 20141005
  25. IBUPROFEN. [Concomitant]
     Active Substance: IBUPROFEN
     Dates: start: 20140106, end: 20140110
  26. IBUPROFEN. [Concomitant]
     Active Substance: IBUPROFEN
     Dates: start: 20140925, end: 20141005
  27. LORAZEPAM. [Concomitant]
     Active Substance: LORAZEPAM
     Dates: start: 20140707, end: 20140708

REACTIONS (2)
  - Pneumonia [Recovered/Resolved]
  - Pneumonia [Recovered/Resolved]

NARRATIVE: CASE EVENT DATE: 20160507
